FAERS Safety Report 8175436-6 (Version None)
Quarter: 2012Q1

REPORT INFORMATION
  Report Type: 
  Country: None (occurrence: None)
  Receive Date: 20120229
  Receipt Date: 20120220
  Transmission Date: 20120608
  Serious: Yes (Hospitalization)
  Sender: FDA-Public Use
  Company Number: FR-ASTRAZENECA-2012SE12722

PATIENT
  Age: 16209 Day
  Sex: Male

DRUGS (9)
  1. LEUCOVORIN CALCIUM [Concomitant]
     Dates: start: 20111201
  2. NEXIUM [Suspect]
     Route: 048
     Dates: start: 20111216, end: 20111227
  3. AMOXICILLIN AND CLAVULANATE POTASSIUM [Suspect]
     Route: 048
     Dates: start: 20111220, end: 20111227
  4. VALACICLOVIR [Concomitant]
     Dates: start: 20111222, end: 20111227
  5. PYRIMETHAMINE TAB [Concomitant]
     Dates: start: 20111216
  6. SULFADIAZINE [Suspect]
     Indication: CEREBRAL TOXOPLASMOSIS
     Route: 048
     Dates: start: 20111216, end: 20111226
  7. ACUPAN [Concomitant]
     Dates: start: 20111220
  8. ROVAMYCINE [Concomitant]
     Route: 042
     Dates: start: 20111222
  9. LOVENOX [Concomitant]
     Dates: start: 20111201

REACTIONS (1)
  - DRUG RASH WITH EOSINOPHILIA AND SYSTEMIC SYMPTOMS [None]
